FAERS Safety Report 6280480-X (Version None)
Quarter: 2009Q3

REPORT INFORMATION
  Report Type: 
  Country: None (occurrence: None)
  Receive Date: 20090724
  Receipt Date: 20080804
  Transmission Date: 20100115
  Serious: No
  Sender: FDA-Public Use
  Company Number: A0737751A

PATIENT
  Age: 87 Year
  Sex: Female

DRUGS (2)
  1. AVANDIA [Suspect]
     Dosage: 4MG PER DAY
     Route: 048
  2. GLIMEPIRIDE [Suspect]
     Dosage: 4MG SINGLE DOSE
     Route: 048

REACTIONS (2)
  - DRUG ADMINISTRATION ERROR [None]
  - DRUG DISPENSING ERROR [None]
